FAERS Safety Report 5512164-7 (Version None)
Quarter: 2007Q4

REPORT INFORMATION
  Report Type: 
  Country: None (occurrence: None)
  Receive Date: 20071112
  Receipt Date: 20071031
  Transmission Date: 20080405
  Serious: Yes (Other)
  Sender: FDA-Public Use
  Company Number: PHBS2007JP18346

PATIENT
  Age: 28 Year
  Sex: Female

DRUGS (5)
  1. IRRADIATION [Concomitant]
     Dates: start: 20051001
  2. CYCLOSPORINE [Suspect]
     Indication: CORD BLOOD TRANSPLANT THERAPY
     Dosage: 3 MG/KG/DAY
     Route: 065
     Dates: start: 20050101
  3. METHOTREXATE [Concomitant]
     Indication: CORD BLOOD TRANSPLANT THERAPY
     Dosage: UNK, UNK
     Route: 065
     Dates: start: 20050101
  4. ENDOXAN [Concomitant]
     Indication: CORD BLOOD TRANSPLANT THERAPY
     Dosage: 60 MG/KG/DAY
     Route: 065
     Dates: start: 20051001
  5. NEUPOGEN [Concomitant]
     Dosage: 5 UG/KG/DAY
     Route: 065
     Dates: start: 20050101

REACTIONS (3)
  - ACUTE GRAFT VERSUS HOST DISEASE IN SKIN [None]
  - CYTOMEGALOVIRUS ANTIGEN POSITIVE [None]
  - FEBRILE NEUTROPENIA [None]
